FAERS Safety Report 7483524-2 (Version None)
Quarter: 2011Q2

REPORT INFORMATION
  Report Type: 
  Country: None (occurrence: None)
  Receive Date: 20110517
  Receipt Date: 20110502
  Transmission Date: 20111010
  Serious: Yes (Hospitalization, Other)
  Sender: FDA-Public Use
  Company Number: US-TYCO HEALTHCARE/MALLINCKRODT-T201100883

PATIENT
  Age: 71 Year
  Sex: Female

DRUGS (1)
  1. HYDROMORPHONE HCL [Suspect]
     Dosage: UNK
     Route: 048

REACTIONS (5)
  - ASPIRATION [None]
  - UNRESPONSIVE TO STIMULI [None]
  - ATRIAL FIBRILLATION [None]
  - REGURGITATION [None]
  - PRODUCTIVE COUGH [None]
